FAERS Safety Report 22346830 (Version 1)
Quarter: 2023Q2

REPORT INFORMATION
  Report Type: Report from Study
  Country: EG (occurrence: EG)
  Receive Date: 20230520
  Receipt Date: 20230520
  Transmission Date: 20230722
  Serious: Yes (Other)
  Sender: FDA-Public Use
  Company Number: EG-002147023-NVSC2023EG110297

PATIENT
  Age: 25 Year
  Sex: Male

DRUGS (4)
  1. COSENTYX [Suspect]
     Active Substance: SECUKINUMAB
     Indication: Psoriatic arthropathy
     Dosage: 1 DOSAGE FORM, QMO (FOR 6 MONTHS)
     Route: 058
     Dates: start: 201903, end: 201909
  2. COSENTYX [Suspect]
     Active Substance: SECUKINUMAB
     Indication: Skin lesion
     Dosage: 150 MG, QMO
     Route: 058
     Dates: start: 202304
  3. METHOTREXATE [Suspect]
     Active Substance: METHOTREXATE
     Indication: Psoriatic arthropathy
     Dosage: 1 DOSAGE FORM, 10QD (1 INJECTION EVERY 10 DAYS)
     Route: 065
     Dates: start: 201903
  4. METHOTREXATE [Suspect]
     Active Substance: METHOTREXATE
     Indication: Skin lesion
     Dosage: 6 DOSAGE FORM, 10QD (1 INJECTION EVERY 10 DAYS THEN  IN APR-2021 SWITCHED TO 6 TABLETS EVERY 10 DAYS
     Route: 065
     Dates: start: 202104

REACTIONS (13)
  - Nausea [Recovered/Resolved]
  - Vomiting [Recovered/Resolved]
  - Psoriatic arthropathy [Recovering/Resolving]
  - Pain in extremity [Recovering/Resolving]
  - Joint stiffness [Recovering/Resolving]
  - Arthralgia [Recovering/Resolving]
  - Dandruff [Recovering/Resolving]
  - Scar [Recovering/Resolving]
  - Inflammation [Recovered/Resolved]
  - Nasopharyngitis [Recovered/Resolved]
  - Cough [Recovered/Resolved]
  - Fatigue [Not Recovered/Not Resolved]
  - Laziness [Not Recovered/Not Resolved]

NARRATIVE: CASE EVENT DATE: 20190501
